FAERS Safety Report 6197651-3 (Version None)
Quarter: 2009Q2

REPORT INFORMATION
  Report Type: 
  Country: None (occurrence: None)
  Receive Date: 20090521
  Receipt Date: 20090515
  Transmission Date: 20091009
  Serious: Yes (Hospitalization, Other)
  Sender: FDA-Public Use
  Company Number: US-BRISTOL-MYERS SQUIBB COMPANY-14619829

PATIENT
  Age: 85 Year
  Sex: Female

DRUGS (13)
  1. BUSPAR [Suspect]
  2. ELAVIL [Interacting]
  3. ASPIRIN [Interacting]
  4. INDOMETHACIN [Interacting]
  5. ZYVOX [Interacting]
  6. REMERON [Interacting]
  7. NAPROSYN [Interacting]
  8. PROCARDIA XL [Interacting]
  9. PRILOSEC [Interacting]
  10. PERPHENAZINE [Interacting]
  11. CARAFATE [Interacting]
  12. DETROL [Interacting]
  13. LIBRAX [Interacting]

REACTIONS (5)
  - DRUG INTERACTION [None]
  - MENTAL STATUS CHANGES [None]
  - RENAL FAILURE ACUTE [None]
  - URINARY RETENTION [None]
  - URINARY TRACT INFECTION [None]
